FAERS Safety Report 12934719 (Version 3)
Quarter: 2019Q2

REPORT INFORMATION
  Report Type: Spontaneous
  Country: JP (occurrence: JP)
  Receive Date: 20161111
  Receipt Date: 20190412
  Transmission Date: 20190711
  Serious: Yes (Other)
  Sender: FDA-Public Use
  Company Number: JP-AMGEN-JPNSP2016160132

PATIENT
  Age: 26 Year
  Sex: Female

DRUGS (3)
  1. REGPARA [Suspect]
     Active Substance: CINACALCET HYDROCHLORIDE
     Indication: PRODUCT USED FOR UNKNOWN INDICATION
     Dosage: UNK
     Route: 065
  2. FUROSEMIDE. [Suspect]
     Active Substance: FUROSEMIDE
     Indication: PRODUCT USED FOR UNKNOWN INDICATION
     Dosage: 60 MILLIGRAM
     Route: 065
  3. ELCITONIN [Suspect]
     Active Substance: ELCATONIN
     Indication: PRODUCT USED FOR UNKNOWN INDICATION
     Dosage: 80 INTERNATIONAL UNIT
     Route: 065

REACTIONS (2)
  - Renal impairment [Recovering/Resolving]
  - Off label use [Unknown]
